FAERS Safety Report 9155327 (Version 1)
Quarter: 2013Q1

REPORT INFORMATION
  Report Type: Spontaneous
  Country: IT (occurrence: None)
  Receive Date: 20130208
  Receipt Date: 20130208
  Transmission Date: 20140127
  Serious: Yes (Hospitalization)
  Sender: FDA-Public Use
  Company Number: 1301TA007776

PATIENT
  Age: 31 Year
  Sex: Female

DRUGS (1)
  1. CEFTIBUTEN [Suspect]
     Indication: PYREXIA
     Route: 048
     Dates: start: 20130105, end: 20130111

REACTIONS (2)
  - Rash [None]
  - Heart rate increased [None]
